FAERS Safety Report 7644643-0 (Version None)
Quarter: 2011Q3

REPORT INFORMATION
  Report Type: 
  Country: None (occurrence: None)
  Receive Date: 20110729
  Receipt Date: 20110726
  Transmission Date: 20111222
  Serious: Yes (Disabling, Other)
  Sender: FDA-Public Use
  Company Number: CH-PFIZER INC-2011169460

PATIENT
  Age: 63 Year
  Sex: Male

DRUGS (3)
  1. SUTENT [Suspect]
     Dosage: 37.5 MG, CYCLIC
     Route: 048
     Dates: start: 20110324
  2. ZOMETA [Suspect]
     Dosage: 4 MG, MONTHLY
     Route: 042
     Dates: start: 20091201, end: 20100101
  3. SUTENT [Suspect]
     Dosage: 50 MG, CYCLIC
     Route: 048
     Dates: start: 20100406, end: 20101105

REACTIONS (1)
  - OSTEONECROSIS [None]
